FAERS Safety Report 24930476 (Version 1)
Quarter: 2025Q1

REPORT INFORMATION
  Report Type: Report from Study
  Country: US (occurrence: US)
  Receive Date: 20250205
  Receipt Date: 20250205
  Transmission Date: 20250409
  Serious: Yes (Other)
  Sender: EMD SERONO INC
  Company Number: US-Merck Healthcare KGaA-2024066163

PATIENT
  Sex: Female

DRUGS (2)
  1. MAVENCLAD [Suspect]
     Active Substance: CLADRIBINE
     Indication: Multiple sclerosis
     Dates: start: 20240823, end: 20240827
  2. MAVENCLAD [Suspect]
     Active Substance: CLADRIBINE

REACTIONS (4)
  - Neuralgia [Unknown]
  - Decreased immune responsiveness [Unknown]
  - Ophthalmic herpes zoster [Unknown]
  - Herpes zoster [Unknown]
